FAERS Safety Report 9549373 (Version 4)
Quarter: 2013Q4

REPORT INFORMATION
  Report Type: Spontaneous
  Country: US (occurrence: US)
  Receive Date: 20130924
  Receipt Date: 20131107
  Transmission Date: 20140711
  Serious: Yes (Death, Hospitalization)
  Sender: FDA-Public Use
  Company Number: US-VIROPHARMA INCORPORATED-20130914CINRY4989

PATIENT
  Age: 40 Year
  Sex: Female
  Weight: 101.24 kg

DRUGS (17)
  1. CINRYZE (C1 ESTERASE INHIBITOR (HUMAN)) [Suspect]
     Indication: HEREDITARY ANGIOEDEMA
     Dates: start: 201109, end: 20131015
  2. CINRYZE (C1 ESTERASE INHIBITOR (HUMAN)) [Suspect]
     Indication: PROPHYLAXIS
  3. CARVEDILOL [Suspect]
     Indication: CARDIOMYOPATHY
     Route: 048
  4. LASIX [Concomitant]
     Indication: CARDIOMYOPATHY
     Route: 048
  5. HYDROCODONE-ACETAMINOPHEN [Concomitant]
     Indication: PRODUCT USED FOR UNKNOWN INDICATION
     Dosage: UNKNOWN
     Route: 065
  6. ALEVE COLD + SINUS [Concomitant]
     Indication: PRODUCT USED FOR UNKNOWN INDICATION
     Dosage: UNKNOWN
     Route: 065
  7. FLEXERIL [Concomitant]
     Indication: PRODUCT USED FOR UNKNOWN INDICATION
     Dosage: UNKNOWN
     Route: 065
  8. EXCEDRIN MIGRAINE [Concomitant]
     Indication: PRODUCT USED FOR UNKNOWN INDICATION
     Dosage: UNKNOWN
     Route: 065
  9. XANAX XR [Concomitant]
     Indication: ANXIETY
     Route: 048
  10. MELOXICAM [Concomitant]
     Indication: PRODUCT USED FOR UNKNOWN INDICATION
     Route: 048
  11. XANAX [Concomitant]
     Indication: ANXIETY
     Dosage: UNKNOWN
     Route: 048
  12. POTASSIUM [Concomitant]
     Indication: PRODUCT USED FOR UNKNOWN INDICATION
     Dosage: UNKNOWN
     Route: 065
  13. CLARITIN-D [Concomitant]
     Indication: PRODUCT USED FOR UNKNOWN INDICATION
     Dosage: UNKNOWN
     Route: 048
  14. OMEPRAZOLE [Concomitant]
     Indication: GASTROOESOPHAGEAL REFLUX DISEASE
     Route: 048
  15. HEPARIN FLUSH [Concomitant]
     Indication: PRODUCT USED FOR UNKNOWN INDICATION
     Dosage: 10 UNIT/CC
     Route: 065
  16. EPIPEN [Concomitant]
     Indication: HEREDITARY ANGIOEDEMA
     Dosage: UNKNOWN
     Route: 065
  17. LEXAPRO [Concomitant]
     Indication: DEPRESSION
     Dosage: UNKNOWN
     Route: 048

REACTIONS (12)
  - Death [Fatal]
  - Cardiac failure [Not Recovered/Not Resolved]
  - Pulmonary embolism [Unknown]
  - Pulmonary infarction [Unknown]
  - Pleural effusion [Recovering/Resolving]
  - Hereditary angioedema [Unknown]
  - Depression [Unknown]
  - Anxiety [Unknown]
  - Hypoxia [Unknown]
  - Iron deficiency anaemia [Unknown]
  - Nausea [Not Recovered/Not Resolved]
  - Inappropriate schedule of drug administration [Unknown]
